FAERS Safety Report 12650033 (Version 1)
Quarter: 2016Q3

REPORT INFORMATION
  Report Type: Spontaneous
  Country: GB (occurrence: GB)
  Receive Date: 20160813
  Receipt Date: 20160813
  Transmission Date: 20161109
  Serious: Yes (Hospitalization)
  Sender: FDA-Public Use
  Company Number: GB-ACCORD-043097

PATIENT
  Age: 52 Year
  Weight: 81 kg

DRUGS (12)
  1. CAPECITABINE. [Suspect]
     Active Substance: CAPECITABINE
     Indication: PRODUCT USED FOR UNKNOWN INDICATION
     Dates: start: 201503
  2. HERCEPTIN [Suspect]
     Active Substance: TRASTUZUMAB
     Indication: PRODUCT USED FOR UNKNOWN INDICATION
     Dates: start: 201501
  3. LAPATINIB/LAPATINIB DITOSYLATE [Suspect]
     Active Substance: LAPATINIB
     Indication: PRODUCT USED FOR UNKNOWN INDICATION
     Dates: start: 201503
  4. EPIRUBICIN [Concomitant]
     Active Substance: EPIRUBICIN
     Dates: start: 201501
  5. FLUOROURACIL. [Concomitant]
     Active Substance: FLUOROURACIL
     Dates: start: 201501
  6. DOCETAXEL. [Concomitant]
     Active Substance: DOCETAXEL
     Dates: start: 201501
  7. LETROZOLE. [Concomitant]
     Active Substance: LETROZOLE
  8. KADCYLA [Suspect]
     Active Substance: ADO-TRASTUZUMAB EMTANSINE
     Indication: PRODUCT USED FOR UNKNOWN INDICATION
     Dates: start: 201505
  9. DENOSUMAB [Concomitant]
     Active Substance: DENOSUMAB
  10. ERIBULIN [Concomitant]
     Active Substance: ERIBULIN
  11. CYCLOPHOSPHAMIDE/CYCLOPHOSPHAMIDE MONOHYDRATE [Concomitant]
     Dates: start: 201501
  12. RAMIPRIL. [Concomitant]
     Active Substance: RAMIPRIL

REACTIONS (15)
  - Fatigue [Unknown]
  - Alopecia [Unknown]
  - Dyspepsia [Unknown]
  - Toxicity to various agents [None]
  - Metastases to liver [None]
  - Dermatitis acneiform [Unknown]
  - Metastases to bone [None]
  - Malignant neoplasm progression [None]
  - Disease progression [Recovered/Resolved]
  - Stomatitis [Unknown]
  - Ejection fraction decreased [Unknown]
  - Palmar-plantar erythrodysaesthesia syndrome [Unknown]
  - Breast cancer metastatic [None]
  - Metastases to lymph nodes [None]
  - Metastases to lung [None]

NARRATIVE: CASE EVENT DATE: 201504
